FAERS Safety Report 13630744 (Version 1)
Quarter: 2017Q2

REPORT INFORMATION
  Report Type: Spontaneous
  Country: US (occurrence: US)
  Receive Date: 20170608
  Receipt Date: 20170608
  Transmission Date: 20170830
  Serious: No
  Sender: FDA-Public Use
  Company Number: US-BRISTOL-MYERS SQUIBB COMPANY-BMS-2017-049705

PATIENT
  Sex: Female

DRUGS (1)
  1. ELIQUIS [Suspect]
     Active Substance: APIXABAN
     Indication: PRODUCT USED FOR UNKNOWN INDICATION
     Route: 065

REACTIONS (7)
  - Tinnitus [Unknown]
  - Syncope [Unknown]
  - Hypoacusis [Unknown]
  - Dehydration [Unknown]
  - Pruritus [Unknown]
  - Appetite disorder [Unknown]
  - Peripheral coldness [Unknown]
